FAERS Safety Report 4459252-4 (Version None)
Quarter: 2004Q3

REPORT INFORMATION
  Report Type: 
  Country: None (occurrence: None)
  Receive Date: 20040922
  Receipt Date: 20040922
  Transmission Date: 20050211
  Serious: Yes (Other)
  Sender: FDA-Public Use
  Company Number: None

PATIENT
  Sex: Male
  Weight: 96.8 kg

DRUGS (11)
  1. HYDROXYUREA [Suspect]
     Indication: ESSENTIAL THROMBOCYTHAEMIA
     Dosage: 500 MG BID ORAL
     Route: 048
     Dates: start: 20040204, end: 20040521
  2. DOCUSATE NA [Concomitant]
  3. FERROUS GLUCONATE [Concomitant]
  4. SYNTHROID [Concomitant]
  5. METOPROLOL SUCCINATE [Concomitant]
  6. PEMOLINE [Concomitant]
  7. PRAMIPEXOLE DIHYDROCHLORIDE [Concomitant]
  8. PROTRIPTYLINE HCL [Concomitant]
  9. SILDENAFIL CITRATE [Concomitant]
  10. SIMVASTATIN [Concomitant]
  11. TEMAZEPAM [Concomitant]

REACTIONS (2)
  - ARTHRALGIA [None]
  - MALAISE [None]
